FAERS Safety Report 8454664-6 (Version None)
Quarter: 2012Q2

REPORT INFORMATION
  Report Type: 
  Country: None (occurrence: None)
  Receive Date: 20120615
  Receipt Date: 20120615
  Transmission Date: 20120825
  Serious: Yes (Other)
  Sender: FDA-Public Use
  Company Number: None

PATIENT
  Sex: Male
  Weight: 70.3075 kg

DRUGS (2)
  1. PREDNISONE [Suspect]
     Dosage: INTRALYMPHATIC
     Route: 027
  2. PREDNISONE [Suspect]
     Indication: ARTHRALGIA
     Dosage: 3/DAY, 2/DAY 1 1/2/DAY  1, 1/2 DIMINISHES OVER PO
     Route: 048
     Dates: start: 20120613, end: 20120614

REACTIONS (7)
  - NAUSEA [None]
  - OROPHARYNGEAL PAIN [None]
  - INSOMNIA [None]
  - DEPRESSION [None]
  - MOOD SWINGS [None]
  - PALPITATIONS [None]
  - HYPERHIDROSIS [None]
